FAERS Safety Report 7180937-3 (Version None)
Quarter: 2010Q4

REPORT INFORMATION
  Report Type: 
  Country: None (occurrence: None)
  Receive Date: 20101221
  Receipt Date: 20100411
  Transmission Date: 20110411
  Serious: No
  Sender: FDA-Public Use
  Company Number: US-AMGEN-TCS405683

PATIENT

DRUGS (2)
  1. ENBREL [Suspect]
     Indication: RHEUMATOID ARTHRITIS
     Dosage: 50 MG, QWK
     Route: 058
     Dates: start: 20100329
  2. METHOTREXATE [Concomitant]
     Dosage: 2.5 MG, QD

REACTIONS (5)
  - COUGH [None]
  - DYSPNOEA [None]
  - FATIGUE [None]
  - OROPHARYNGEAL PAIN [None]
  - THROAT IRRITATION [None]
